FAERS Safety Report 4612730-7 (Version None)
Quarter: 2005Q1

REPORT INFORMATION
  Report Type: 
  Country: None (occurrence: None)
  Receive Date: 20050318
  Receipt Date: 20050314
  Transmission Date: 20050727
  Serious: Yes (Disabling)
  Sender: FDA-Public Use
  Company Number: US-MERCK-0503USA02305

PATIENT
  Age: 45 Year
  Sex: Female

DRUGS (5)
  1. SINGULAIR [Suspect]
     Indication: ASTHMA
     Route: 048
     Dates: start: 20050114, end: 20050204
  2. ALLEGRA [Concomitant]
     Route: 065
  3. PULMICORT [Concomitant]
     Route: 065
  4. NASACORT [Concomitant]
     Route: 065
  5. OMNICEF [Concomitant]
     Route: 065

REACTIONS (2)
  - BACK PAIN [None]
  - HYPOAESTHESIA [None]
